FAERS Safety Report 17845923 (Version 2)
Quarter: 2020Q2

REPORT INFORMATION
  Report Type: Spontaneous
  Country: US (occurrence: US)
  Receive Date: 20200601
  Receipt Date: 20200625
  Transmission Date: 20200714
  Serious: Yes (Other)
  Sender: FDA-Public Use
  Company Number: US-LUPIN PHARMACEUTICALS INC.-2020-02535

PATIENT
  Age: 59 Year
  Sex: Female
  Weight: 47 kg

DRUGS (3)
  1. CLOBAZAM TABLETS, 10 MG [Suspect]
     Active Substance: CLOBAZAM
     Indication: SEIZURE
     Dosage: UNK UNK, BID (1 TABLET EVERY MORNING AND 2 TABLETS EVERY EVENING)
     Route: 048
     Dates: start: 20200516
  2. CELEXA [CELECOXIB] [Concomitant]
     Active Substance: CELECOXIB
     Indication: DEPRESSION
     Dosage: UNK
     Route: 048
  3. VIMPAT [Concomitant]
     Active Substance: LACOSAMIDE
     Indication: SEIZURE
     Dosage: 300 MILLIGRAM, BID
     Route: 048

REACTIONS (13)
  - Abdominal pain upper [Not Recovered/Not Resolved]
  - Confusional state [Not Recovered/Not Resolved]
  - Decreased appetite [Not Recovered/Not Resolved]
  - Feeling abnormal [Not Recovered/Not Resolved]
  - Dysarthria [Recovered/Resolved]
  - Product quality issue [None]
  - Temporal lobe epilepsy [Not Recovered/Not Resolved]
  - Weight decreased [Not Recovered/Not Resolved]
  - Withdrawal syndrome [Not Recovered/Not Resolved]
  - Chills [Not Recovered/Not Resolved]
  - Nervousness [Not Recovered/Not Resolved]
  - Drug ineffective [Unknown]
  - Fatigue [Not Recovered/Not Resolved]

NARRATIVE: CASE EVENT DATE: 20200516
